FAERS Safety Report 10071030 (Version 2)
Quarter: 2014Q2

REPORT INFORMATION
  Report Type: Spontaneous
  Country: AU (occurrence: AU)
  Receive Date: 20140410
  Receipt Date: 20140416
  Transmission Date: 20141212
  Serious: Yes (Hospitalization)
  Sender: FDA-Public Use
  Company Number: AU-ALEXION PHARMACEUTICALS INC.-A201401162

PATIENT
  Sex: 0

DRUGS (2)
  1. SOLIRIS 300MG [Suspect]
     Indication: HAEMOLYTIC URAEMIC SYNDROME
     Dosage: 1200 MG, UNK
     Route: 042
  2. PENICILLIN                         /00000901/ [Concomitant]
     Indication: PROPHYLAXIS
     Dosage: UNK UNK, QID
     Route: 048

REACTIONS (5)
  - Device related infection [Unknown]
  - Neisseria infection [Unknown]
  - Hypersensitivity [Recovered/Resolved]
  - Cardiac murmur [Unknown]
  - Haemoglobin decreased [Unknown]
